FAERS Safety Report 22390017 (Version 1)
Quarter: 2023Q2

REPORT INFORMATION
  Report Type: Spontaneous
  Country: CA (occurrence: CA)
  Receive Date: 20230531
  Receipt Date: 20230531
  Transmission Date: 20230722
  Serious: Yes (Hospitalization, Other)
  Sender: FDA-Public Use
  Company Number: None

PATIENT

DRUGS (6)
  1. SODIUM CHLORIDE [Suspect]
     Active Substance: SODIUM CHLORIDE
     Indication: Product used for unknown indication
     Dosage: 1 LITER
     Route: 065
  2. CALCITONIN [Suspect]
     Active Substance: CALCITONIN
     Indication: Hypercalcaemia
     Route: 058
  3. CALCIUM CARBONATE [Suspect]
     Active Substance: CALCIUM CARBONATE
     Indication: Product used for unknown indication
     Dosage: 750 MILLIGRAM, 6 EVERY 1 DAYS
     Route: 048
  4. DOXYLAMINE SUCCINATE\PYRIDOXINE HYDROCHLORIDE [Suspect]
     Active Substance: DOXYLAMINE SUCCINATE\PYRIDOXINE HYDROCHLORIDE
     Indication: Product used for unknown indication
     Dosage: 6 DOSAGE FORM
     Route: 065
  5. FOLIC ACID [Suspect]
     Active Substance: FOLIC ACID
     Indication: Product used for unknown indication
     Dosage: 1 MILLIGRAM, QD
     Route: 048
  6. METOCLOPRAMIDE [Suspect]
     Active Substance: METOCLOPRAMIDE
     Indication: Product used for unknown indication
     Dosage: 10 MILLIGRAM, BID
     Route: 048

REACTIONS (16)
  - Hyperphosphataemia [Recovered/Resolved]
  - Blood bicarbonate increased [Recovered/Resolved]
  - Blood parathyroid hormone decreased [Recovered/Resolved]
  - Dialysis [Recovered/Resolved]
  - Exposure during pregnancy [Recovered/Resolved]
  - Hypochloraemia [Recovered/Resolved]
  - Live birth [Recovered/Resolved]
  - Hypercalcaemia [Recovered/Resolved]
  - Malaise [Recovered/Resolved]
  - Metabolic alkalosis [Recovered/Resolved]
  - Milk-alkali syndrome [Recovered/Resolved]
  - Muscle spasms [Recovered/Resolved]
  - Renal impairment [Recovered/Resolved]
  - Nausea [Recovered/Resolved]
  - Renal injury [Recovered/Resolved]
  - Vomiting [Recovered/Resolved]
